FAERS Safety Report 9102912 (Version 1)
Quarter: 2013Q1

REPORT INFORMATION
  Report Type: Report from Study
  Country: GB (occurrence: GB)
  Receive Date: 20130218
  Receipt Date: 20130218
  Transmission Date: 20140127
  Serious: Yes (Hospitalization)
  Sender: FDA-Public Use
  Company Number: GB-AMGEN-GBRCT2013009942

PATIENT
  Age: 73 Year
  Sex: Female
  Weight: 64 kg

DRUGS (2)
  1. ETANERCEPT [Suspect]
     Indication: RHEUMATOID ARTHRITIS
     Dosage: 25 MG, 2X/WEEK
     Dates: start: 20041112, end: 201207
  2. METHOTREXATE [Concomitant]
     Dosage: UNK
     Dates: start: 20091030, end: 201207

REACTIONS (2)
  - Diverticular perforation [Recovered/Resolved]
  - Abscess intestinal [Recovered/Resolved]
